FAERS Safety Report 5704574-X (Version None)
Quarter: 2008Q2

REPORT INFORMATION
  Report Type: 
  Country: None (occurrence: None)
  Receive Date: 20080411
  Receipt Date: 20080411
  Transmission Date: 20081010
  Serious: Yes (Hospitalization)
  Sender: FDA-Public Use
  Company Number: None

PATIENT
  Sex: Female
  Weight: 66.6 kg

DRUGS (4)
  1. CARBOPLATIN [Suspect]
     Dosage: 630 MG
     Dates: end: 20070703
  2. TAXOTERE [Suspect]
     Dosage: 130 MG
     Dates: end: 20070713
  3. DILAUDID [Concomitant]
  4. OXYCONDONE [Concomitant]

REACTIONS (5)
  - ASTHENIA [None]
  - FALL [None]
  - GENERAL PHYSICAL HEALTH DETERIORATION [None]
  - HAEMOGLOBIN DECREASED [None]
  - MUSCULAR WEAKNESS [None]
